FAERS Safety Report 5076485-7 (Version None)
Quarter: 2006Q3

REPORT INFORMATION
  Report Type: 
  Country: None (occurrence: None)
  Receive Date: 20060810
  Receipt Date: 20060602
  Transmission Date: 20061208
  Serious: Yes (Death, Hospitalization, Other)
  Sender: FDA-Public Use
  Company Number: US-BRISTOL-MYERS SQUIBB COMPANY-13400254

PATIENT
  Age: 73 Year
  Sex: Female
  Weight: 84 kg

DRUGS (13)
  1. PRAVACHOL [Suspect]
     Indication: BLOOD CHOLESTEROL INCREASED
     Route: 048
     Dates: start: 20050922, end: 20060516
  2. PLAVIX [Suspect]
     Indication: STENT PLACEMENT
     Route: 048
     Dates: start: 20050922, end: 20060516
  3. ASPIRIN [Concomitant]
  4. LASIX [Concomitant]
  5. LISINOPRIL [Concomitant]
  6. TOPROL-XL [Concomitant]
  7. NORVASC [Concomitant]
  8. LANTUS [Concomitant]
     Dosage: DOSAGE FORM = 16/16 UNITS
  9. AMBIEN [Concomitant]
  10. HYDROCHLOROTHIAZIDE [Concomitant]
  11. NEURONTIN [Concomitant]
  12. COREG [Concomitant]
  13. AMIODARONE HCL [Concomitant]

REACTIONS (4)
  - CARDIAC FAILURE CONGESTIVE [None]
  - CATHETERISATION CARDIAC [None]
  - COMA [None]
  - CORONARY ARTERY DISEASE [None]
